FAERS Safety Report 10690197 (Version 1)
Quarter: 2015Q1

REPORT INFORMATION
  Report Type: Spontaneous
  Country: US (occurrence: None)
  Receive Date: 20150102
  Receipt Date: 20150102
  Transmission Date: 20150720
  Serious: No
  Sender: FDA-Public Use
  Company Number: None

PATIENT
  Age: 58 Year
  Sex: Male

DRUGS (9)
  1. HYDROCODONE/APAP [Concomitant]
     Active Substance: ACETAMINOPHEN\HYDROCODONE
  2. GLEEVEC [Suspect]
     Active Substance: IMATINIB MESYLATE
     Indication: PRODUCT USED FOR UNKNOWN INDICATION
     Route: 048
     Dates: start: 20141119, end: 20141217
  3. ISONIAZID. [Concomitant]
     Active Substance: ISONIAZID
  4. DIAZEPAM. [Concomitant]
     Active Substance: DIAZEPAM
  5. NASONEX [Concomitant]
     Active Substance: MOMETASONE FUROATE
  6. MELOXICAM. [Concomitant]
     Active Substance: MELOXICAM
  7. AZITHROMYCIN [Concomitant]
     Active Substance: AZITHROMYCIN ANHYDROUS
  8. SERTRALINE [Concomitant]
     Active Substance: SERTRALINE HYDROCHLORIDE
  9. CHANTIX [Concomitant]
     Active Substance: VARENICLINE TARTRATE

REACTIONS (4)
  - Nausea [None]
  - Weight decreased [None]
  - Muscle spasms [None]
  - Vomiting [None]

NARRATIVE: CASE EVENT DATE: 20141121
